FAERS Safety Report 24800094 (Version 3)
Quarter: 2025Q1

REPORT INFORMATION
  Report Type: Report from Study
  Country: US (occurrence: US)
  Receive Date: 20250102
  Receipt Date: 20250228
  Transmission Date: 20250409
  Serious: Yes (Other)
  Sender: BRISTOL-MYERS SQUIBB COMPANY
  Company Number: US-BRISTOL-MYERS SQUIBB COMPANY-2024-201717

PATIENT
  Age: 60 Year
  Sex: Male
  Weight: 131.54 kg

DRUGS (7)
  1. ELIQUIS [Suspect]
     Active Substance: APIXABAN
     Indication: Atrial fibrillation
     Route: 048
     Dates: start: 2019
  2. ELIQUIS [Suspect]
     Active Substance: APIXABAN
     Route: 048
  3. DOXYCYCLINE [Concomitant]
     Active Substance: DOXYCYCLINE
     Indication: Cellulitis
  4. BACITRACIN [Concomitant]
     Active Substance: BACITRACIN
     Indication: Cellulitis
  5. SODIUM CHLORIDE [Concomitant]
     Active Substance: SODIUM CHLORIDE
     Indication: Cellulitis
  6. DILTIAZEM [Concomitant]
     Active Substance: DILTIAZEM
     Indication: Product used for unknown indication
  7. ATORVASTATIN [Concomitant]
     Active Substance: ATORVASTATIN
     Indication: Product used for unknown indication

REACTIONS (11)
  - Scratch [Unknown]
  - Scab [Unknown]
  - Contusion [Unknown]
  - Fall [Unknown]
  - Treatment noncompliance [Unknown]
  - Limb injury [Recovered/Resolved]
  - Rectal haemorrhage [Unknown]
  - Memory impairment [Unknown]
  - Nasopharyngitis [Unknown]
  - Wound haemorrhage [Not Recovered/Not Resolved]
  - Skin ulcer [Unknown]

NARRATIVE: CASE EVENT DATE: 20240101
